FAERS Safety Report 13776224 (Version 3)
Quarter: 2017Q3

REPORT INFORMATION
  Report Type: Spontaneous
  Country: JP (occurrence: JP)
  Receive Date: 20170720
  Receipt Date: 20170905
  Transmission Date: 20171127
  Serious: Yes (Death)
  Sender: FDA-Public Use
  Company Number: JP-MITSUBISHI TANABE PHARMA CORPORATION-MTPC2017-0008632

PATIENT
  Age: 70 Year
  Sex: Male
  Weight: 78 kg

DRUGS (2)
  1. GRTPA [Suspect]
     Active Substance: ALTEPLASE
     Indication: CEREBRAL INFARCTION
     Route: 042
     Dates: start: 20130117, end: 20130117
  2. RADICUT [Suspect]
     Active Substance: EDARAVONE
     Route: 042
     Dates: start: 20130117, end: 20130120

REACTIONS (1)
  - Interstitial lung disease [Fatal]

NARRATIVE: CASE EVENT DATE: 20130117
